FAERS Safety Report 4786815-9 (Version None)
Quarter: 2005Q4

REPORT INFORMATION
  Report Type: 
  Country: None (occurrence: None)
  Receive Date: 20051004
  Receipt Date: 20050923
  Transmission Date: 20060501
  Serious: Yes (Hospitalization)
  Sender: FDA-Public Use
  Company Number: 2005UW14100

PATIENT
  Sex: Female

DRUGS (14)
  1. NEXIUM [Suspect]
     Indication: GASTROOESOPHAGEAL REFLUX DISEASE
  2. PRILOSEC [Suspect]
     Indication: GASTROOESOPHAGEAL REFLUX DISEASE
  3. TAGAMET [Suspect]
     Indication: GASTROOESOPHAGEAL REFLUX DISEASE
     Route: 048
     Dates: end: 20050722
  4. ZANTAC [Suspect]
     Indication: GASTROOESOPHAGEAL REFLUX DISEASE
     Route: 048
     Dates: start: 20050811, end: 20050811
  5. TAGAMET [Suspect]
  6. PEPCID [Suspect]
     Indication: GASTROOESOPHAGEAL REFLUX DISEASE
  7. LIQUORICE [Suspect]
     Indication: GASTROOESOPHAGEAL REFLUX DISEASE
  8. OMEPRAZOLE [Suspect]
     Indication: GASTROOESOPHAGEAL REFLUX DISEASE
  9. PHENAZOPYRIDINE HCL TAB [Concomitant]
  10. NITROFURANTOIN [Concomitant]
  11. PROPANTHELINE BROMIDE [Concomitant]
  12. MESALAMINE [Concomitant]
  13. DIAZEPAM [Concomitant]
  14. CITALOPRAM HYDROBROMIDE [Concomitant]

REACTIONS (7)
  - BLADDER SPASM [None]
  - DIZZINESS [None]
  - DRUG INEFFECTIVE [None]
  - EATING DISORDER [None]
  - MALAISE [None]
  - NAUSEA [None]
  - SUICIDAL IDEATION [None]
